FAERS Safety Report 12383510 (Version 1)
Quarter: 2016Q2

REPORT INFORMATION
  Report Type: Spontaneous
  Country: US (occurrence: US)
  Receive Date: 20160518
  Receipt Date: 20160518
  Transmission Date: 20160815
  Serious: Yes (Life-Threatening, Hospitalization)
  Sender: FDA-Public Use
  Company Number: US-MYLANLABS-2016M1020376

PATIENT

DRUGS (1)
  1. BUPROPION. [Suspect]
     Active Substance: BUPROPION
     Indication: PRODUCT USED FOR UNKNOWN INDICATION
     Dosage: 60 TABLETS OF 150MG
     Route: 048

REACTIONS (6)
  - Cardiogenic shock [Recovering/Resolving]
  - Overdose [Recovering/Resolving]
  - Pulseless electrical activity [Recovering/Resolving]
  - Status epilepticus [Recovered/Resolved]
  - Cardiomyopathy [Unknown]
  - Toxicity to various agents [Recovered/Resolved]
